FAERS Safety Report 12214158 (Version 1)
Quarter: 2016Q1

REPORT INFORMATION
  Report Type: Other
  Country: US (occurrence: US)
  Receive Date: 20160328
  Receipt Date: 20160328
  Transmission Date: 20160526
  Serious: Yes (Hospitalization, Other)
  Sender: FDA-Public Use
  Company Number: US-CTI_01875_2016

PATIENT
  Age: 73 Year
  Sex: Female

DRUGS (7)
  1. BUDESONIDE. [Suspect]
     Active Substance: BUDESONIDE
     Indication: BRONCHIECTASIS
     Dosage: DF
     Route: 055
  2. BROMIDE ALBUTEROL [Concomitant]
     Dosage: DF
     Route: 055
  3. TOBRAMYCIN. [Suspect]
     Active Substance: TOBRAMYCIN
     Indication: BRONCHIECTASIS
     Dosage: DF
     Route: 055
  4. PREDNISONE. [Suspect]
     Active Substance: PREDNISONE
     Indication: ASTHMA
     Dosage: DF
     Route: 048
  5. BUDESONIDE. [Suspect]
     Active Substance: BUDESONIDE
     Indication: ASTHMA
     Dosage: DF
     Route: 055
  6. TOBRAMYCIN. [Suspect]
     Active Substance: TOBRAMYCIN
     Indication: ASTHMA
     Dosage: DF
     Route: 055
  7. PREDNISONE. [Suspect]
     Active Substance: PREDNISONE
     Indication: BRONCHIECTASIS
     Dosage: DF
     Route: 048

REACTIONS (2)
  - Off label use [Unknown]
  - Aspergillus infection [Recovered/Resolved]
